FAERS Safety Report 7293448-1 (Version None)
Quarter: 2011Q1

REPORT INFORMATION
  Report Type: 
  Country: None (occurrence: None)
  Receive Date: 20110204
  Receipt Date: 20110125
  Transmission Date: 20110831
  Serious: Yes (Disabling, Other)
  Sender: FDA-Public Use
  Company Number: 026145

PATIENT
  Age: 53 Year
  Sex: Female
  Weight: 73 kg

DRUGS (4)
  1. LAMICTAL [Concomitant]
  2. OXCARBAZEPINE [Concomitant]
  3. KEPPRA [Suspect]
     Indication: EPILEPSY
     Dosage: (1000 MG) ; (4000 MG)
     Dates: start: 20081209, end: 20100301
  4. KEPPRA [Suspect]
     Indication: EPILEPSY
     Dosage: (1000 MG) ; (4000 MG)
     Dates: start: 20100309, end: 20100609

REACTIONS (6)
  - SUICIDAL IDEATION [None]
  - MAJOR DEPRESSION [None]
  - MEMORY IMPAIRMENT [None]
  - COGNITIVE DISORDER [None]
  - HYPERTENSION [None]
  - CONVULSION [None]
